FAERS Safety Report 6090367-3 (Version None)
Quarter: 2009Q1

REPORT INFORMATION
  Report Type: 
  Country: None (occurrence: None)
  Receive Date: 20090220
  Receipt Date: 20090217
  Transmission Date: 20090719
  Serious: Yes (Other)
  Sender: FDA-Public Use
  Company Number: 6049073

PATIENT
  Age: 62 Year
  Sex: Female

DRUGS (3)
  1. BISOPROLOL (BISOPROLOL) ,7298 [Suspect]
     Indication: HYPERTENSION
     Dosage: 20 MG (5 MG, 4 IN 1 D)
  2. AMITRIPTYLINE HCL [Concomitant]
  3. OMEPRAZOLE [Concomitant]

REACTIONS (3)
  - DRUG INEFFECTIVE [None]
  - POOR QUALITY DRUG ADMINISTERED [None]
  - PRODUCT QUALITY ISSUE [None]
